FAERS Safety Report 21055112 (Version 1)
Quarter: 2022Q3

REPORT INFORMATION
  Report Type: Spontaneous
  Country: HR (occurrence: None)
  Receive Date: 20220707
  Receipt Date: 20220707
  Transmission Date: 20221027
  Serious: Yes (Hospitalization, Other)
  Sender: FDA-Public Use
  Company Number: 2022A241307

PATIENT
  Age: 57 Year
  Sex: Female

DRUGS (10)
  1. ROSUVASTATIN [Suspect]
     Active Substance: ROSUVASTATIN
     Dosage: UNK
     Route: 065
  2. ATORVASTATIN [Suspect]
     Active Substance: ATORVASTATIN
     Dosage: UNK
     Route: 065
  3. BEMPEDOIC ACID [Concomitant]
     Active Substance: BEMPEDOIC ACID
  4. BISOPROLOL [Concomitant]
     Active Substance: BISOPROLOL
  5. EZETIMIBE [Concomitant]
     Active Substance: EZETIMIBE
  6. ASPIRIN [Concomitant]
     Active Substance: ASPIRIN
  7. TICAGRELOR [Concomitant]
     Active Substance: TICAGRELOR
     Dosage: 2 X 90 MG
  8. PRALUENT [Concomitant]
     Active Substance: ALIROCUMAB
  9. RAMIPRIL [Concomitant]
     Active Substance: RAMIPRIL
  10. METFORMIN [Concomitant]
     Active Substance: METFORMIN HYDROCHLORIDE
     Dosage: 2X850MG

REACTIONS (8)
  - Coronary artery disease [Unknown]
  - Myocardial ischaemia [Unknown]
  - Stenosis [Unknown]
  - Disease progression [Unknown]
  - Transaminases increased [Unknown]
  - Myalgia [Unknown]
  - Pain in extremity [Unknown]
  - Drug intolerance [Unknown]
